FAERS Safety Report 8116840 (Version 6)
Quarter: 2014Q2

REPORT INFORMATION
  Report Type: Spontaneous
  Country: US (occurrence: US)
  Receive Date: 20110901
  Receipt Date: 20140522
  Transmission Date: 20141212
  Serious: Yes (Hospitalization, Other)
  Sender: FDA-Public Use
  Company Number: US-ASTRAZENECA-2011SE50949

PATIENT
  Age: 55 Year
  Sex: Female
  Weight: 70.3 kg

DRUGS (16)
  1. NEXIUM [Suspect]
     Indication: GASTROOESOPHAGEAL REFLUX DISEASE
     Route: 048
  2. NEXIUM [Suspect]
     Indication: LARGE INTESTINAL ULCER HAEMORRHAGE
     Route: 048
  3. NEXIUM [Suspect]
     Indication: GASTROOESOPHAGEAL REFLUX DISEASE
     Route: 048
     Dates: start: 2013
  4. NEXIUM [Suspect]
     Indication: LARGE INTESTINAL ULCER HAEMORRHAGE
     Route: 048
     Dates: start: 2013
  5. PROPRANOLOL [Suspect]
     Indication: BLOOD PRESSURE ABNORMAL
     Route: 048
     Dates: start: 1994
  6. BRILINTA [Suspect]
     Indication: ANTICOAGULANT THERAPY
     Route: 048
     Dates: start: 20140418
  7. BRILINTA [Suspect]
     Indication: MYOCARDIAL INFARCTION
     Route: 048
     Dates: start: 20140418
  8. BRILINTA [Suspect]
     Indication: STENT PLACEMENT
     Route: 048
     Dates: start: 20140418
  9. ARTHRITIS MEDICATIONS [Suspect]
  10. XANAX [Concomitant]
     Indication: ANXIETY
     Route: 048
     Dates: start: 2010
  11. ALPRAZOLAM [Concomitant]
     Indication: BLOOD PRESSURE ABNORMAL
     Dosage: 1MG TID OR PRN TID
     Route: 048
  12. NORVASC [Concomitant]
     Indication: BLOOD PRESSURE ABNORMAL
     Route: 048
     Dates: start: 2013
  13. PRAVACHOL [Concomitant]
     Indication: BLOOD CHOLESTEROL ABNORMAL
     Route: 048
     Dates: start: 20140418
  14. HYDROCODONE [Concomitant]
     Indication: PAIN
     Route: 048
  15. ALTACE [Concomitant]
     Indication: HYPERTENSION
  16. SOMA [Concomitant]
     Indication: MUSCLE RELAXANT THERAPY

REACTIONS (15)
  - Large intestinal ulcer [Unknown]
  - Oesophageal ulcer [Unknown]
  - Lower limb fracture [Unknown]
  - Ankle fracture [Unknown]
  - Myocardial infarction [Recovering/Resolving]
  - Heat stroke [Unknown]
  - Skeletal injury [Recovered/Resolved with Sequelae]
  - Arterial occlusive disease [Unknown]
  - Gastrointestinal ulcer haemorrhage [Unknown]
  - Pain [Unknown]
  - Blood pressure abnormal [Unknown]
  - Disorientation [Not Recovered/Not Resolved]
  - Confusional state [Not Recovered/Not Resolved]
  - Drug dose omission [Unknown]
  - Off label use [Not Recovered/Not Resolved]
